FAERS Safety Report 6714269-1 (Version None)
Quarter: 2010Q2

REPORT INFORMATION
  Report Type: 
  Country: None (occurrence: None)
  Receive Date: 20100506
  Receipt Date: 20090915
  Transmission Date: 20101027
  Serious: No
  Sender: FDA-Public Use
  Company Number: US-BAUSCH-2009BL004656

PATIENT
  Age: 67 Year
  Sex: Female
  Weight: 63 kg

DRUGS (4)
  1. LOTEMAX [Suspect]
     Indication: OCULAR HYPERAEMIA
     Route: 047
     Dates: start: 20090904, end: 20090912
  2. AZOPT [Concomitant]
     Indication: OPEN ANGLE GLAUCOMA
     Route: 047
     Dates: start: 20090701
  3. COMBIGAN [Concomitant]
     Indication: OPEN ANGLE GLAUCOMA
     Route: 047
     Dates: start: 20090301
  4. ARTIFICIAL TEARS [Concomitant]
     Indication: DRY EYE
     Route: 047

REACTIONS (1)
  - INTRAOCULAR PRESSURE INCREASED [None]
